FAERS Safety Report 24835232 (Version 1)
Quarter: 2025Q1

REPORT INFORMATION
  Report Type: Spontaneous
  Country: FR (occurrence: FR)
  Receive Date: 20250113
  Receipt Date: 20250113
  Transmission Date: 20250408
  Serious: Yes (Hospitalization, Other)
  Sender: BAXTER
  Company Number: None

PATIENT
  Age: 49 Year
  Sex: Male
  Weight: 63.2 kg

DRUGS (5)
  1. OLIMEL E [Suspect]
     Active Substance: AMINO ACIDS\DEXTROSE\ELECTROLYTES NOS\SOYBEAN OIL
     Route: 048
     Dates: start: 20240722
  2. ALPELISIB [Concomitant]
     Active Substance: ALPELISIB
     Indication: Growth disorder
     Route: 048
     Dates: start: 20240725, end: 20240725
  3. ALPELISIB [Concomitant]
     Active Substance: ALPELISIB
     Route: 048
     Dates: start: 20240726, end: 20240811
  4. ALPELISIB [Concomitant]
     Active Substance: ALPELISIB
     Route: 048
     Dates: start: 20240817, end: 20240819
  5. ALPELISIB [Concomitant]
     Active Substance: ALPELISIB
     Route: 048
     Dates: start: 20240820

REACTIONS (1)
  - Hepatitis cholestatic [Not Recovered/Not Resolved]

NARRATIVE: CASE EVENT DATE: 20240726
